FAERS Safety Report 8572032-3 (Version None)
Quarter: 2012Q3

REPORT INFORMATION
  Report Type: 
  Country: None (occurrence: None)
  Receive Date: 20120806
  Receipt Date: 20120725
  Transmission Date: 20120928
  Serious: Yes (Hospitalization, Other)
  Sender: FDA-Public Use
  Company Number: DE-BRISTOL-MYERS SQUIBB COMPANY-16676421

PATIENT
  Age: 57 Year
  Sex: Female
  Weight: 65 kg

DRUGS (3)
  1. ABILIFY [Suspect]
     Indication: SCHIZOPHRENIA, CATATONIC TYPE
     Dosage: 30MG FOR 3-4 MONTHS, THEN REDUCED.
     Route: 048
     Dates: start: 20120301
  2. FLUTICASONE PROPIONATE/SALMETEROL [Concomitant]
  3. RUDOTEL [Concomitant]
     Dosage: 1DF= TABS

REACTIONS (3)
  - RIGHT VENTRICULAR FAILURE [None]
  - LIVER FUNCTION TEST ABNORMAL [None]
  - OEDEMA PERIPHERAL [None]
